FAERS Safety Report 24380835 (Version 1)
Quarter: 2024Q3

REPORT INFORMATION
  Report Type: Spontaneous
  Country: US (occurrence: US)
  Receive Date: 20240930
  Receipt Date: 20240930
  Transmission Date: 20241016
  Serious: Yes (Hospitalization, Other)
  Sender: PURDUE
  Company Number: US-PURDUE-USA-2024-0312204

PATIENT
  Age: 25 Year
  Sex: Male

DRUGS (2)
  1. DRONABINOL [Suspect]
     Active Substance: DRONABINOL
     Indication: Product used for unknown indication
     Dosage: 13 MILLILITER
     Route: 048
  2. LORAZEPAM [Concomitant]
     Active Substance: LORAZEPAM
     Indication: Product used for unknown indication
     Dosage: 1 MILLIGRAM
     Route: 042

REACTIONS (6)
  - Toxicity to various agents [Unknown]
  - Chest discomfort [Unknown]
  - Tachycardia [Unknown]
  - Palpitations [Unknown]
  - Anxiety [Unknown]
  - Incorrect dose administered [Unknown]
